FAERS Safety Report 23418482 (Version 1)
Quarter: 2024Q1

REPORT INFORMATION
  Report Type: Spontaneous
  Country: US (occurrence: None)
  Receive Date: 20240118
  Receipt Date: 20240118
  Transmission Date: 20240409
  Serious: Yes (Hospitalization)
  Sender: FDA-Public Use
  Company Number: None

PATIENT
  Age: 88 Year
  Sex: Male

DRUGS (1)
  1. LENALIDOMIDE [Suspect]
     Active Substance: LENALIDOMIDE
     Indication: B-cell lymphoma
     Dosage: 25 MG BY MOUTH? TAKE 1 CAPSULE BY MOUTH 1 TIME A DAY FOR 21 DAYS AN THEN 7 DAYS OFF??
     Route: 048
     Dates: start: 202312

REACTIONS (8)
  - Sepsis [None]
  - Pneumonia [None]
  - Pulmonary thrombosis [None]
  - Thrombosis [None]
  - Thrombosis [None]
  - Asthenia [None]
  - Dysstasia [None]
  - Gait inability [None]

NARRATIVE: CASE EVENT DATE: 20231221
